FAERS Safety Report 13981149 (Version 1)
Quarter: 2017Q3

REPORT INFORMATION
  Report Type: Spontaneous
  Country: US (occurrence: US)
  Receive Date: 20170915
  Receipt Date: 20170915
  Transmission Date: 20171128
  Serious: Yes (Disabling)
  Sender: FDA-Public Use
  Company Number: None

PATIENT
  Age: 63 Year
  Sex: Female
  Weight: 49.5 kg

DRUGS (3)
  1. GLUCOSAMINE [Concomitant]
     Active Substance: GLUCOSAMINE
  2. FORTEO [Suspect]
     Active Substance: TERIPARATIDE
     Indication: OSTEOPOROSIS
     Dosage: ?          QUANTITY:1 INJECTION(S);OTHER ROUTE:INJECTION?
     Dates: start: 20150101, end: 20151228
  3. WARFARIN [Concomitant]
     Active Substance: WARFARIN

REACTIONS (2)
  - Condition aggravated [None]
  - Bone density decreased [None]

NARRATIVE: CASE EVENT DATE: 20151231
